FAERS Safety Report 10578488 (Version 1)
Quarter: 2014Q4

REPORT INFORMATION
  Report Type: Report from Study
  Country: US (occurrence: US)
  Receive Date: 20141112
  Receipt Date: 20141112
  Transmission Date: 20150529
  Serious: Yes (Hospitalization)
  Sender: FDA-Public Use
  Company Number: US-ROCHE-1487122

PATIENT
  Age: 67 Year
  Sex: Male

DRUGS (2)
  1. BEVACIZUMAB [Suspect]
     Active Substance: BEVACIZUMAB
     Indication: METASTATIC NEOPLASM
     Dosage: OVER 30-90 MINUTES, ON DAYS-15,1 AND 15
     Route: 042
     Dates: start: 20140225
  2. TIVANTINIB [Suspect]
     Active Substance: TIVANTINIB
     Indication: METASTATIC NEOPLASM
     Dosage: 240 MG TWICE A DAY, ON DAYS 1-28,?MOST RECENT DOSE ON 04/MAY/2014
     Route: 048
     Dates: start: 20140225

REACTIONS (2)
  - Dizziness [Recovered/Resolved]
  - Vertigo [Recovered/Resolved]

NARRATIVE: CASE EVENT DATE: 20140510
